FAERS Safety Report 8813120 (Version 1)
Quarter: 2012Q4

REPORT INFORMATION
  Report Type: 
  Country: US (occurrence: US)
  Receive Date: 20120927
  Receipt Date: 20120927
  Transmission Date: 20130627
  Serious: No
  Sender: FDA-Public Use
  Company Number: US-AMGEN-USASP2012054007

PATIENT
  Sex: Female

DRUGS (5)
  1. PROLIA [Suspect]
     Indication: OSTEOPOROSIS POSTMENOPAUSAL
     Dosage: UNK UNK, q6mo
     Dates: start: 20120520
  2. CALCIUM WITH VITAMIN D             /00944201/ [Concomitant]
     Dosage: UNK
  3. VITAMIN D /00107901/ [Concomitant]
     Dosage: UNK
  4. DIOVAN [Concomitant]
     Dosage: UNK
  5. GLUCOSAMINE CHONDROITIN            /01430901/ [Concomitant]
     Dosage: UNK

REACTIONS (6)
  - Back pain [Recovering/Resolving]
  - Chest pain [Recovering/Resolving]
  - Oral pain [Recovering/Resolving]
  - Pain in jaw [Recovering/Resolving]
  - Toothache [Recovering/Resolving]
  - Pain in extremity [Recovering/Resolving]
